FAERS Safety Report 14254722 (Version 1)
Quarter: 2017Q4

REPORT INFORMATION
  Report Type: Spontaneous
  Country: US (occurrence: US)
  Receive Date: 20171205
  Receipt Date: 20171205
  Transmission Date: 20180321
  Serious: Yes (Hospitalization)
  Sender: FDA-Public Use
  Company Number: None

PATIENT
  Age: 55 Year
  Sex: Male
  Weight: 85.5 kg

DRUGS (1)
  1. JARDIANCE [Suspect]
     Active Substance: EMPAGLIFLOZIN
     Indication: DIABETES MELLITUS
     Dosage: ?          QUANTITY:1 TABLET(S);?
     Dates: start: 20171103, end: 20171203

REACTIONS (2)
  - Vomiting [None]
  - Diabetic ketoacidosis [None]

NARRATIVE: CASE EVENT DATE: 20171106
